FAERS Safety Report 10026727 (Version 1)
Quarter: 2014Q1

REPORT INFORMATION
  Report Type: Spontaneous
  Country: DE (occurrence: DE)
  Receive Date: 20140321
  Receipt Date: 20140321
  Transmission Date: 20141002
  Serious: Yes (Other)
  Sender: FDA-Public Use
  Company Number: DE-ASTRAZENECA-2014SE18963

PATIENT
  Age: 63 Year
  Sex: Female
  Weight: 113 kg

DRUGS (5)
  1. BRILLIQUE [Suspect]
     Indication: STENT PLACEMENT
     Route: 048
     Dates: start: 20140203, end: 20140307
  2. ASS [Concomitant]
     Route: 048
     Dates: start: 20140203
  3. BISOHEXAL [Concomitant]
     Route: 048
     Dates: start: 20140203
  4. DELIX [Concomitant]
     Route: 048
     Dates: start: 20140203
  5. SIMVASTATIN [Concomitant]
     Route: 048
     Dates: start: 20140203

REACTIONS (2)
  - Agranulocytosis [Recovered/Resolved]
  - Leukopenia [Recovered/Resolved]
